FAERS Safety Report 10733822 (Version 1)
Quarter: 2015Q1

REPORT INFORMATION
  Report Type: Spontaneous
  Country: GR (occurrence: GR)
  Receive Date: 20150123
  Receipt Date: 20150123
  Transmission Date: 20150721
  Serious: Yes (Hospitalization)
  Sender: FDA-Public Use
  Company Number: GR-009507513-1501GRC008380

PATIENT
  Age: 70 Year
  Sex: Female

DRUGS (2)
  1. JANUVIA [Suspect]
     Active Substance: SITAGLIPTIN PHOSPHATE
     Indication: DIABETES MELLITUS
     Dosage: 1 TABLET EVERY DAY
     Route: 048
     Dates: start: 2013, end: 20150106
  2. INSULIN [Concomitant]
     Active Substance: INSULIN NOS

REACTIONS (1)
  - Respiratory tract infection [Recovered/Resolved with Sequelae]

NARRATIVE: CASE EVENT DATE: 20150103
